FAERS Safety Report 6289828-3 (Version None)
Quarter: 2009Q3

REPORT INFORMATION
  Report Type: 
  Country: None (occurrence: None)
  Receive Date: 20090730
  Receipt Date: 20080812
  Transmission Date: 20100115
  Serious: Yes (Other)
  Sender: FDA-Public Use
  Company Number: US-BRISTOL-MYERS SQUIBB COMPANY-14299424

PATIENT
  Age: 49 Year
  Sex: Male
  Weight: 120 kg

DRUGS (4)
  1. WARFARIN SODIUM [Suspect]
  2. LOVENOX [Suspect]
     Indication: PULMONARY EMBOLISM
     Dosage: FORM=INJ, PREVIOUSLY 120MG 2/D, STOPPED 30JAN08, RESUMED 12FEB08, AND DISCONTINUED ON 20MAR08
     Dates: start: 20080115, end: 20080320
  3. LOVENOX [Suspect]
     Indication: DEEP VEIN THROMBOSIS
     Dosage: FORM=INJ, PREVIOUSLY 120MG 2/D, STOPPED 30JAN08, RESUMED 12FEB08, AND DISCONTINUED ON 20MAR08
     Dates: start: 20080115, end: 20080320
  4. LOVENOX [Suspect]
     Indication: EMBOLISM
     Dosage: FORM=INJ, PREVIOUSLY 120MG 2/D, STOPPED 30JAN08, RESUMED 12FEB08, AND DISCONTINUED ON 20MAR08
     Dates: start: 20080115, end: 20080320

REACTIONS (5)
  - COAGULATION FACTOR VII LEVEL DECREASED [None]
  - COAGULATION FACTOR X LEVEL DECREASED [None]
  - HEPATIC ENZYME INCREASED [None]
  - PROTHROMBIN LEVEL DECREASED [None]
  - RETROPERITONEAL HAEMORRHAGE [None]
